FAERS Safety Report 19349632 (Version 1)
Quarter: 2021Q2

REPORT INFORMATION
  Report Type: Spontaneous
  Country: US (occurrence: US)
  Receive Date: 20210531
  Receipt Date: 20210531
  Transmission Date: 20210717
  Serious: Yes (Other)
  Sender: FDA-Public Use
  Company Number: None

PATIENT
  Age: 67 Year
  Sex: Female
  Weight: 60.75 kg

DRUGS (6)
  1. KRILL OIL [Concomitant]
     Active Substance: DIETARY SUPPLEMENT\KRILL OIL
  2. OMEPRAZOLE. [Concomitant]
     Active Substance: OMEPRAZOLE
  3. ALL DAY PAIN RELIEF NAPROXEN SODIUM [Suspect]
     Active Substance: NAPROXEN SODIUM
     Indication: BACK PAIN
     Dosage: ?          QUANTITY:1 TABLET(S);?
     Route: 048
     Dates: start: 20210527, end: 20210530
  4. FENOFIBRATE. [Concomitant]
     Active Substance: FENOFIBRATE
  5. PAROXETINE. [Concomitant]
     Active Substance: PAROXETINE
  6. IRBESARTAN. [Concomitant]
     Active Substance: IRBESARTAN

REACTIONS (3)
  - Burn oesophageal [None]
  - Dyspepsia [None]
  - Feeding disorder [None]

NARRATIVE: CASE EVENT DATE: 20210530
